FAERS Safety Report 18844935 (Version 1)
Quarter: 2021Q1

REPORT INFORMATION
  Report Type: Spontaneous
  Country: ID (occurrence: ID)
  Receive Date: 20210204
  Receipt Date: 20210204
  Transmission Date: 20210419
  Serious: Yes (Death, Hospitalization)
  Sender: FDA-Public Use
  Company Number: ID-BAYER-2021-039488

PATIENT
  Age: 38 Year
  Sex: Male

DRUGS (2)
  1. GADOVIST [Suspect]
     Active Substance: GADOBUTROL
     Indication: SCAN WITH CONTRAST
     Dosage: UNK, ONCE
     Route: 042
     Dates: start: 20210126, end: 20210126
  2. GADOVIST [Suspect]
     Active Substance: GADOBUTROL
     Indication: MAGNETIC RESONANCE IMAGING BRAIN

REACTIONS (3)
  - Heart rate increased [Fatal]
  - Dyspnoea [Fatal]
  - Nausea [Fatal]

NARRATIVE: CASE EVENT DATE: 20210126
